FAERS Safety Report 20125270 (Version 2)
Quarter: 2022Q1

REPORT INFORMATION
  Report Type: Report from Study
  Country: US (occurrence: US)
  Receive Date: 20211129
  Receipt Date: 20220105
  Transmission Date: 20220424
  Serious: No
  Sender: FDA-Public Use
  Company Number: US-LUNDBECK-DKLU3041031

PATIENT
  Age: 33 Year
  Sex: Male

DRUGS (1)
  1. VYEPTI [Suspect]
     Active Substance: EPTINEZUMAB-JJMR
     Indication: Migraine
     Dates: start: 20211110

REACTIONS (1)
  - Therapeutic response decreased [Unknown]

NARRATIVE: CASE EVENT DATE: 20211110
